FAERS Safety Report 24848619 (Version 1)
Quarter: 2025Q1

REPORT INFORMATION
  Report Type: Other
  Country: CN (occurrence: CN)
  Receive Date: 20250116
  Receipt Date: 20250116
  Transmission Date: 20250409
  Serious: Yes (Other)
  Sender: PARATEK PHARMACEUTICALS
  Company Number: CN-PARATEK PHARMACEUTICALS, INC.-2025PTK00049

PATIENT
  Age: 67 Year
  Sex: Female
  Weight: 55 kg

DRUGS (1)
  1. NUZYRA [Suspect]
     Active Substance: OMADACYCLINE
     Indication: Pneumonia
     Dosage: 0.1 G, 1X/DAY
     Route: 041
     Dates: start: 20241130, end: 20241208

REACTIONS (1)
  - Rash [Recovered/Resolved]

NARRATIVE: CASE EVENT DATE: 20241208
